FAERS Safety Report 5502230-4 (Version None)
Quarter: 2007Q4

REPORT INFORMATION
  Report Type: 
  Country: None (occurrence: None)
  Receive Date: 20071030
  Receipt Date: 20071018
  Transmission Date: 20080405
  Serious: Yes (Hospitalization)
  Sender: FDA-Public Use
  Company Number: US-ELI_LILLY_AND_COMPANY-US200710004842

PATIENT
  Sex: Male
  Weight: 72.109 kg

DRUGS (2)
  1. BYETTA [Suspect]
     Indication: TYPE 2 DIABETES MELLITUS
     Dosage: 10 UG, 2/D
     Route: 058
     Dates: start: 20060101
  2. LASIX [Concomitant]
     Dosage: UNK, UNKNOWN

REACTIONS (5)
  - AORTIC VALVE REPLACEMENT [None]
  - CATHETERISATION CARDIAC [None]
  - CORONARY ARTERY BYPASS [None]
  - DENTAL TREATMENT [None]
  - WEIGHT DECREASED [None]
